FAERS Safety Report 4373135-X (Version None)
Quarter: 2004Q2

REPORT INFORMATION
  Report Type: 
  Country: None (occurrence: None)
  Receive Date: 20040603
  Receipt Date: 20040519
  Transmission Date: 20050107
  Serious: Yes (Death)
  Sender: FDA-Public Use
  Company Number: USA040258779

PATIENT
  Age: 35 Year
  Sex: Female
  Weight: 104 kg

DRUGS (15)
  1. STRATTERA [Suspect]
     Dosage: 60 MG/1 DAY
  2. HYDROCODONE [Concomitant]
  3. TOPAMAX [Concomitant]
  4. OXYCONTIN [Concomitant]
  5. ACCOLATE [Concomitant]
  6. RISPERIDONE [Concomitant]
  7. AMBIEN [Concomitant]
  8. LORATADINE [Concomitant]
  9. NEURONTIN [Concomitant]
  10. METFORMIN HCL [Concomitant]
  11. ALPRAZOLAM [Concomitant]
  12. PROCHLORPERAZINE [Concomitant]
  13. CITALOPRAM [Concomitant]
  14. CHLORPROPAMIDE [Concomitant]
  15. CHLORPROMAZINE [Concomitant]

REACTIONS (4)
  - COMPLETED SUICIDE [None]
  - CONTUSION [None]
  - DRUG TOXICITY [None]
  - MULTIPLE DRUG OVERDOSE [None]
